FAERS Safety Report 9246432 (Version 6)
Quarter: 2014Q3

REPORT INFORMATION
  Report Type: Report from Study
  Country: US (occurrence: US)
  Receive Date: 20130422
  Receipt Date: 20140729
  Transmission Date: 20150326
  Serious: Yes (Hospitalization, Other)
  Sender: FDA-Public Use
  Company Number: US-US-EMD SERONO, INC.-7205813

PATIENT
  Age: 49 Year
  Sex: Male
  Weight: 122 kg

DRUGS (4)
  1. PROVIGIL [Concomitant]
     Active Substance: MODAFINIL
     Indication: ASTHENIA
  2. REBIF [Suspect]
     Active Substance: INTERFERON BETA-1A
     Indication: MULTIPLE SCLEROSIS
     Route: 058
     Dates: start: 20100628, end: 201309
  3. REBIF [Suspect]
     Active Substance: INTERFERON BETA-1A
     Route: 058
     Dates: start: 201310
  4. NORCO [Concomitant]
     Active Substance: ACETAMINOPHEN\HYDROCODONE BITARTRATE
     Indication: PAIN

REACTIONS (10)
  - Renal pain [Recovering/Resolving]
  - Pneumothorax [Recovering/Resolving]
  - Post procedural sepsis [Unknown]
  - Post procedural drainage [Unknown]
  - Renal failure [Recovering/Resolving]
  - Weight decreased [Unknown]
  - Kidney infection [Recovering/Resolving]
  - Urinary tract infection [Unknown]
  - Cholelithiasis [Recovering/Resolving]
  - Ileus [Unknown]

NARRATIVE: CASE EVENT DATE: 201301
